FAERS Safety Report 23731203 (Version 2)
Quarter: 2024Q2

REPORT INFORMATION
  Report Type: Spontaneous
  Country: JP (occurrence: JP)
  Receive Date: 20240411
  Receipt Date: 20240424
  Transmission Date: 20240716
  Serious: Yes (Hospitalization)
  Sender: FDA-Public Use
  Company Number: JP-002147023-NVSJ2024JP004306

PATIENT
  Age: 68 Year
  Sex: Male

DRUGS (1)
  1. CERTICAN [Suspect]
     Active Substance: EVEROLIMUS
     Indication: Liver transplant rejection
     Route: 048

REACTIONS (2)
  - Anal fissure [Recovered/Resolved]
  - Product use issue [Unknown]
